FAERS Safety Report 9322271 (Version 1)
Quarter: 2013Q2

REPORT INFORMATION
  Report Type: Spontaneous
  Country: US (occurrence: None)
  Receive Date: 20130528
  Receipt Date: 20130528
  Transmission Date: 20140414
  Serious: Yes (Death)
  Sender: FDA-Public Use
  Company Number: 2012AP003372

PATIENT
  Age: 46 Year
  Sex: Male
  Weight: 60 kg

DRUGS (1)
  1. FERRIPROX [Suspect]
     Indication: SICKLE CELL ANAEMIA
     Dates: start: 20120913

REACTIONS (1)
  - Death [None]
